FAERS Safety Report 5723252-4 (Version None)
Quarter: 2008Q2

REPORT INFORMATION
  Report Type: 
  Country: None (occurrence: None)
  Receive Date: 20080429
  Receipt Date: 20080429
  Transmission Date: 20081010
  Serious: No
  Sender: FDA-Public Use
  Company Number: None

PATIENT
  Age: 46 Year
  Sex: Male
  Weight: 81.6475 kg

DRUGS (3)
  1. ENTOCORT EC [Suspect]
     Indication: INFLAMMATORY BOWEL DISEASE
     Dosage: 6 MG. DAILY PO
     Route: 048
     Dates: start: 20010104, end: 20020428
  2. VEXOL [Concomitant]
  3. SALAZOPYRINE [Concomitant]

REACTIONS (9)
  - EYE INJURY [None]
  - GLAUCOMA [None]
  - OPTIC NERVE DISORDER [None]
  - OPTIC NERVE INJURY [None]
  - PAIN [None]
  - PHARMACEUTICAL PRODUCT COMPLAINT [None]
  - UVEITIS [None]
  - VISION BLURRED [None]
  - VISUAL FIELD DEFECT [None]
